FAERS Safety Report 18555288 (Version 1)
Quarter: 2020Q4

REPORT INFORMATION
  Report Type: Report from Study
  Country: US (occurrence: US)
  Receive Date: 20201127
  Receipt Date: 20201127
  Transmission Date: 20210114
  Serious: Yes (Death, Hospitalization, Disabling)
  Sender: FDA-Public Use
  Company Number: US-ASTRAZENECA-2020SF34226

PATIENT
  Age: 81 Year
  Sex: Male
  Weight: 59 kg

DRUGS (4)
  1. TAGRISSO [Suspect]
     Active Substance: OSIMERTINIB
     Indication: ADENOCARCINOMA
     Route: 048
     Dates: start: 2019
  2. TAGRISSO [Suspect]
     Active Substance: OSIMERTINIB
     Indication: ADENOCARCINOMA
     Route: 048
     Dates: end: 2020
  3. XARELTO [Concomitant]
     Active Substance: RIVAROXABAN
     Dates: start: 202003, end: 202008
  4. METOPROLOL. [Suspect]
     Active Substance: METOPROLOL
     Dosage: 125.0MG UNKNOWN
     Route: 065
     Dates: start: 202003, end: 20200828

REACTIONS (4)
  - Cardio-respiratory arrest [Fatal]
  - Cardiac disorder [Fatal]
  - Pulmonary thrombosis [Fatal]
  - Lung neoplasm malignant [Fatal]
